FAERS Safety Report 22036801 (Version 4)
Quarter: 2023Q1

REPORT INFORMATION
  Report Type: Report from Study
  Country: US (occurrence: US)
  Receive Date: 20230225
  Receipt Date: 20230327
  Transmission Date: 20230418
  Serious: Yes (Other)
  Sender: FDA-Public Use
  Company Number: US-UCBSA-2023008885

PATIENT
  Age: 5 Year
  Sex: Male
  Weight: 27 kg

DRUGS (16)
  1. FINTEPLA [Suspect]
     Active Substance: FENFLURAMINE
     Indication: Severe myoclonic epilepsy of infancy
     Dosage: 3.3 MILLILITER, 2X/DAY (BID)
  2. FINTEPLA [Suspect]
     Active Substance: FENFLURAMINE
     Dosage: 0.5 MG/KG/DAY
     Dates: start: 20220318
  3. FINTEPLA [Suspect]
     Active Substance: FENFLURAMINE
     Dosage: 14.5 MILLIGRAM, ONCE DAILY (QD)
  4. FINTEPLA [Suspect]
     Active Substance: FENFLURAMINE
     Dosage: 2.2 MILLIGRAM PER MILLILITRE
     Route: 048
  5. FINTEPLA [Suspect]
     Active Substance: FENFLURAMINE
     Dosage: 3.3 MILLILITER, 2X/DAY (BID)
     Dates: start: 20220221, end: 20230307
  6. VIMPAT [Concomitant]
     Active Substance: LACOSAMIDE
     Indication: Product used for unknown indication
     Dosage: 100 MILLIGRAM, TAKE 0.8 TABLETS (80 MG) BY MOUTH 2 TIMES A DAY
     Route: 048
  7. ZYRTEC [Concomitant]
     Active Substance: CETIRIZINE HYDROCHLORIDE
     Indication: Product used for unknown indication
     Dosage: TAKE 1 TABLET (5 MG) BY MOUTH ONCE A DAY
  8. CARNITOR [Concomitant]
     Active Substance: LEVOCARNITINE
     Indication: Product used for unknown indication
     Dosage: 100 MG TAKE 1.4 ML (140 MG)
  9. ATROPINE [Concomitant]
     Active Substance: ATROPINE
     Indication: Drooling
     Dosage: 1 % DROPS, PLACE 1-2 DROPS UNDER THE TONGUE 3 TIMES A DAY
  10. SODIUM BICARBONATE [Concomitant]
     Active Substance: SODIUM BICARBONATE
     Indication: Product used for unknown indication
     Dosage: TAKE 1 TABLET (650 MG) BY MOUTH EVERY MORNING AND 2 TABLETS (1,300 MG) AT BEDTIME
  11. CANNABIDIOL [Concomitant]
     Active Substance: CANNABIDIOL
     Indication: Product used for unknown indication
     Dosage: 100 MG/ML, TAKE 2 ML (200 MG) BY MOUTH 2 TIMES A DAY
     Route: 048
  12. LUMINAL [PHENOBARBITAL] [Concomitant]
     Indication: Product used for unknown indication
     Dosage: 64.8 MG TABLET, GIVE 1 TABLET (64.8 MG)
  13. VITAMIN D3 [Concomitant]
     Active Substance: CHOLECALCIFEROL
     Indication: Product used for unknown indication
     Dosage: 125 MCG/0.5 ML (5K UNIT/0.5ML) DROP, GIVE 0.2ML (2000UNITS)
  14. KENALOG [Concomitant]
     Active Substance: TRIAMCINOLONE ACETONIDE
     Indication: Product used for unknown indication
     Dosage: EVERY 4-6 HOURS AS NEEDED FOR REDNESS AROUND THE G TUBE
  15. PHENOBARBITAL [Concomitant]
     Active Substance: PHENOBARBITAL
     Indication: Product used for unknown indication
     Dosage: TAKE 2 TABLETS (32.4 MG) BY GT IN AM AND 1 TAB AT (16.2 MG) AT BEDTIME)
     Route: 048
  16. PHENOBARBITAL [Concomitant]
     Active Substance: PHENOBARBITAL
     Dosage: 64.8 MG

REACTIONS (10)
  - Aortic dilatation [Not Recovered/Not Resolved]
  - Generalised tonic-clonic seizure [Unknown]
  - Idiopathic generalised epilepsy [Unknown]
  - Hypoxia [Unknown]
  - Autism spectrum disorder [Unknown]
  - Echocardiogram abnormal [Recovered/Resolved]
  - Developmental delay [Unknown]
  - Obstructive sleep apnoea syndrome [Unknown]
  - Incorrect dose administered [Unknown]
  - Drug ineffective [Unknown]

NARRATIVE: CASE EVENT DATE: 20220811
